FAERS Safety Report 12204820 (Version 3)
Quarter: 2016Q2

REPORT INFORMATION
  Report Type: Spontaneous
  Country: US (occurrence: US)
  Receive Date: 20160323
  Receipt Date: 20160620
  Transmission Date: 20160815
  Serious: Yes (Hospitalization, Other)
  Sender: FDA-Public Use
  Company Number: US-PFIZER INC-2016169651

PATIENT
  Age: 62 Year
  Sex: Male
  Weight: 93.89 kg

DRUGS (5)
  1. CHANTIX [Suspect]
     Active Substance: VARENICLINE TARTRATE
     Indication: SMOKING CESSATION THERAPY
     Dosage: 0.5 MG, DAILY
     Dates: start: 20151208, end: 20151221
  2. NEXIUM [Concomitant]
     Active Substance: ESOMEPRAZOLE MAGNESIUM
     Dosage: UNK
     Dates: start: 20130422
  3. CHANTIX [Suspect]
     Active Substance: VARENICLINE TARTRATE
     Dosage: 1 MG, DAILY
     Dates: start: 20151222, end: 20160105
  4. CRESTOR [Concomitant]
     Active Substance: ROSUVASTATIN CALCIUM
     Dosage: UNK
     Dates: start: 20140422
  5. CHANTIX [Suspect]
     Active Substance: VARENICLINE TARTRATE
     Dosage: 1 MG, 2X/DAY
     Dates: start: 20160106, end: 20160322

REACTIONS (15)
  - Agitation [Recovered/Resolved]
  - Heart rate decreased [Unknown]
  - Vocal cord paralysis [Not Recovered/Not Resolved]
  - Blood pressure increased [Recovered/Resolved]
  - Laryngitis [Not Recovered/Not Resolved]
  - Swollen tongue [Unknown]
  - Tongue disorder [Unknown]
  - Aphonia [Unknown]
  - Dysphonia [Unknown]
  - Snoring [Unknown]
  - Irritability [Recovered/Resolved]
  - Head titubation [Unknown]
  - Lethargy [Recovered/Resolved]
  - Feeling abnormal [Recovered/Resolved]
  - Somnolence [Recovered/Resolved]

NARRATIVE: CASE EVENT DATE: 201512
